FAERS Safety Report 24767179 (Version 1)
Quarter: 2024Q4

REPORT INFORMATION
  Report Type: Spontaneous
  Country: HR (occurrence: HR)
  Receive Date: 20241223
  Receipt Date: 20241223
  Transmission Date: 20250115
  Serious: Yes (Other)
  Sender: FRESENIUS KABI
  Company Number: HR-009507513-2412HRV002996

PATIENT
  Age: 64 Year
  Sex: Male

DRUGS (6)
  1. PEMETREXED [Suspect]
     Active Substance: PEMETREXED
     Indication: Non-small cell lung cancer
     Dosage: UNK
  2. PEMETREXED [Suspect]
     Active Substance: PEMETREXED
     Dosage: UNK
     Dates: start: 202302
  3. KEYTRUDA [Suspect]
     Active Substance: PEMBROLIZUMAB
     Indication: Non-small cell lung cancer
     Dosage: 200 MILLIGRAM?FOA-SOLUTION FOR INJECTION
  4. KEYTRUDA [Suspect]
     Active Substance: PEMBROLIZUMAB
     Dosage: UNK?FOA-SOLUTION FOR INJECTION
     Dates: start: 202302, end: 20241029
  5. CISPLATIN [Suspect]
     Active Substance: CISPLATIN
     Indication: Non-small cell lung cancer
     Dosage: UNK
  6. CISPLATIN [Suspect]
     Active Substance: CISPLATIN
     Dosage: UNK
     Dates: start: 202302

REACTIONS (5)
  - Seizure [Unknown]
  - Pneumonia [Unknown]
  - Malignant neoplasm progression [Unknown]
  - Tumour pseudoprogression [Unknown]
  - Metabolic disorder [Unknown]

NARRATIVE: CASE EVENT DATE: 20220101
